FAERS Safety Report 23218525 (Version 1)
Quarter: 2023Q4

REPORT INFORMATION
  Report Type: Spontaneous
  Country: US (occurrence: None)
  Receive Date: 20231122
  Receipt Date: 20231122
  Transmission Date: 20240109
  Serious: Yes (Disabling)
  Sender: FDA-Public Use
  Company Number: None

PATIENT
  Age: 28 Year
  Sex: Female
  Weight: 46.35 kg

DRUGS (3)
  1. CIPROFLOXACIN [Suspect]
     Active Substance: CIPROFLOXACIN
     Indication: Urinary tract infection
     Dosage: OTHER QUANTITY : 1 TABLET(S);?FREQUENCY : TWICE A DAY;?
     Route: 048
     Dates: start: 20231118, end: 20231119
  2. VITAMIN D [Concomitant]
     Active Substance: VITAMIN D NOS
  3. iron supplements [Concomitant]

REACTIONS (13)
  - Anxiety [None]
  - Confusional state [None]
  - Pain in extremity [None]
  - Pain in extremity [None]
  - Pain [None]
  - Gait disturbance [None]
  - Tendon pain [None]
  - Paraesthesia [None]
  - Fatigue [None]
  - Muscle spasms [None]
  - Arthralgia [None]
  - Dysstasia [None]
  - Neck pain [None]

NARRATIVE: CASE EVENT DATE: 20231119
